FAERS Safety Report 19390826 (Version 2)
Quarter: 2021Q2

REPORT INFORMATION
  Report Type: Report from Study
  Country: CA (occurrence: CA)
  Receive Date: 20210608
  Receipt Date: 20210628
  Transmission Date: 20210717
  Serious: Yes (Other)
  Sender: FDA-Public Use
  Company Number: CA-TAKEDA-2021TUS035770

PATIENT
  Age: 22 Year
  Sex: Male

DRUGS (2)
  1. HUMIRA [Concomitant]
     Active Substance: ADALIMUMAB
     Dosage: UNK
  2. VEDOLIZUMAB [Suspect]
     Active Substance: VEDOLIZUMAB
     Indication: CROHN^S DISEASE
     Dosage: 300 MILLIGRAM
     Route: 042
     Dates: start: 20210511

REACTIONS (8)
  - Insomnia [Unknown]
  - Mucous stools [Unknown]
  - Musculoskeletal discomfort [Unknown]
  - Crohn^s disease [Unknown]
  - Rectal haemorrhage [Unknown]
  - Migraine [Unknown]
  - Restlessness [Unknown]
  - Headache [Unknown]
